FAERS Safety Report 10184658 (Version 1)
Quarter: 2014Q2

REPORT INFORMATION
  Report Type: Spontaneous
  Country: DE (occurrence: DE)
  Receive Date: 20140521
  Receipt Date: 20140521
  Transmission Date: 20141212
  Serious: Yes (Hospitalization, Other)
  Sender: FDA-Public Use
  Company Number: DE-ASTRAZENECA-2014SE33197

PATIENT
  Age: 59 Year
  Sex: Male

DRUGS (3)
  1. NEXIUM [Suspect]
     Indication: GASTROOESOPHAGEAL REFLUX DISEASE
     Route: 048
  2. MORPHINE [Concomitant]
  3. DRONABINOL [Concomitant]

REACTIONS (8)
  - Deafness unilateral [Unknown]
  - Neurological symptom [Unknown]
  - Urinary incontinence [Unknown]
  - Blood chromogranin A increased [Not Recovered/Not Resolved]
  - Blood gastrin increased [Unknown]
  - Vertigo [Unknown]
  - Nausea [Unknown]
  - Vomiting [Unknown]
